FAERS Safety Report 15292107 (Version 3)
Quarter: 2018Q3

REPORT INFORMATION
  Report Type: Spontaneous
  Country: NL (occurrence: NL)
  Receive Date: 20180818
  Receipt Date: 20180919
  Transmission Date: 20181010
  Serious: Yes (Death, Hospitalization, Other)
  Sender: FDA-Public Use
  Company Number: NL-AUROBINDO-AUR-APL-2018-041769

PATIENT
  Age: 8 Decade
  Sex: Male

DRUGS (3)
  1. PREDNISONE. [Suspect]
     Active Substance: PREDNISONE
     Indication: CHRONIC LYMPHOCYTIC LEUKAEMIA
     Dosage: UNKNOWN
     Route: 065
  2. ENDOXAN                            /00021101/ [Suspect]
     Active Substance: CYCLOPHOSPHAMIDE
     Indication: CHRONIC LYMPHOCYTIC LEUKAEMIA
     Dosage: UNK
     Route: 065
  3. CYCLOPHOSPHAMIDE. [Suspect]
     Active Substance: CYCLOPHOSPHAMIDE
     Indication: CHRONIC LYMPHOCYTIC LEUKAEMIA
     Dosage: UNKNOWN
     Route: 065

REACTIONS (15)
  - Aspergillus infection [Fatal]
  - Tachypnoea [Fatal]
  - Cardiac failure [Fatal]
  - Pseudomonal sepsis [Fatal]
  - Pyrexia [Fatal]
  - Respiratory failure [Fatal]
  - Fungal infection [Unknown]
  - Lung infection [Fatal]
  - Listeriosis [Fatal]
  - Bronchopulmonary aspergillosis [Fatal]
  - Pseudomonas infection [Fatal]
  - Neutropenia [Fatal]
  - Respiratory tract infection fungal [Fatal]
  - Depressed level of consciousness [Fatal]
  - Meningitis listeria [Fatal]
